FAERS Safety Report 6278851-0 (Version None)
Quarter: 2009Q3

REPORT INFORMATION
  Report Type: 
  Country: None (occurrence: None)
  Receive Date: 20090723
  Receipt Date: 20090714
  Transmission Date: 20100115
  Serious: Yes (Other)
  Sender: FDA-Public Use
  Company Number: US-BIOGENIDEC-2009BI019945

PATIENT
  Age: 48 Year
  Sex: Female
  Weight: 70 kg

DRUGS (2)
  1. AVONEX [Suspect]
     Indication: MULTIPLE SCLEROSIS
     Route: 030
     Dates: start: 19980501
  2. AVONEX [Suspect]
     Route: 030

REACTIONS (6)
  - ALOPECIA [None]
  - BASAL CELL CARCINOMA [None]
  - DEPRESSED MOOD [None]
  - INSOMNIA [None]
  - MEMORY IMPAIRMENT [None]
  - SKIN LESION [None]
